FAERS Safety Report 9412715 (Version 1)
Quarter: 2013Q3

REPORT INFORMATION
  Report Type: Spontaneous
  Country: CN (occurrence: CN)
  Receive Date: 20130722
  Receipt Date: 20130722
  Transmission Date: 20140515
  Serious: Yes (Hospitalization)
  Sender: FDA-Public Use
  Company Number: CN-PFIZER INC-2013209078

PATIENT
  Age: 61 Year
  Sex: Male

DRUGS (8)
  1. SUNITINIB MALATE [Suspect]
     Indication: PANCREATIC NEUROENDOCRINE TUMOUR
     Dosage: 12.5 MG, 1X/DAY
     Route: 048
  2. SANDOSTATIN [Concomitant]
     Indication: PANCREATIC NEUROENDOCRINE TUMOUR
     Dosage: 30 MG, EVERY 3 WEEKS
     Route: 030
  3. EVEROLIMUS [Concomitant]
     Indication: PANCREATIC NEUROENDOCRINE TUMOUR
     Dosage: 10 MG, 1X/DAY
  4. CAPECITABINE [Concomitant]
     Indication: PANCREATIC NEUROENDOCRINE TUMOUR
     Route: 042
  5. OXALIPLATIN [Concomitant]
     Indication: PANCREATIC NEUROENDOCRINE TUMOUR
  6. FLUOROURACIL [Concomitant]
     Indication: PANCREATIC NEUROENDOCRINE TUMOUR
  7. IRINOTECAN [Concomitant]
     Indication: PANCREATIC NEUROENDOCRINE TUMOUR
  8. FOLINIC ACID [Concomitant]
     Indication: PANCREATIC NEUROENDOCRINE TUMOUR

REACTIONS (3)
  - Hyperammonaemia [Recovered/Resolved]
  - Neutropenia [Unknown]
  - Thrombocytopenia [Unknown]
